FAERS Safety Report 8173004-3 (Version None)
Quarter: 2012Q1

REPORT INFORMATION
  Report Type: 
  Country: None (occurrence: None)
  Receive Date: 20120223
  Receipt Date: 20120208
  Transmission Date: 20120608
  Serious: Yes (Other)
  Sender: FDA-Public Use
  Company Number: JPI-P-019742

PATIENT
  Age: 42 Year
  Sex: Female
  Weight: 86.1834 kg

DRUGS (7)
  1. METHYLPHENIDATE HCL [Concomitant]
  2. ROPINIROLE HYDROCHLORIDE [Concomitant]
  3. MONTELUKAST SODIUM [Concomitant]
  4. XYREM [Suspect]
     Indication: CATAPLEXY
     Dosage: 5 GM (2.5 GM, 2 IN 1 D), ORAL
     Route: 048
     Dates: start: 20120101, end: 20120131
  5. XYREM [Suspect]
     Indication: CATAPLEXY
     Dosage: (UNKNOWN)
     Dates: start: 20120127, end: 20120101
  6. IMIPRAMINE HCL [Concomitant]
  7. XYREM [Suspect]
     Indication: CATAPLEXY
     Dosage: 9 GM (4.5 GM, 2 IN 1 D), ORAL
     Route: 048
     Dates: start: 20120206, end: 20120206

REACTIONS (7)
  - MIGRAINE [None]
  - LOSS OF CONSCIOUSNESS [None]
  - FEELING ABNORMAL [None]
  - AUTOMATISM [None]
  - NAUSEA [None]
  - DIZZINESS [None]
  - SLEEP DISORDER [None]
